FAERS Safety Report 5876477-1 (Version None)
Quarter: 2008Q3

REPORT INFORMATION
  Report Type: 
  Country: None (occurrence: None)
  Receive Date: 20080910
  Receipt Date: 20080905
  Transmission Date: 20090109
  Serious: Yes (Other)
  Sender: FDA-Public Use
  Company Number: A0746104A

PATIENT
  Age: 60 Year
  Sex: Female

DRUGS (3)
  1. PAXIL [Suspect]
     Indication: DEPRESSION
     Dosage: 10MG PER DAY
     Route: 048
     Dates: start: 19971205, end: 20050101
  2. PAXIL [Suspect]
     Dosage: 12.5MG PER DAY
     Route: 048
     Dates: start: 20050101
  3. NO CONCURRENT MEDICATION [Concomitant]

REACTIONS (6)
  - APHASIA [None]
  - DRUG INEFFECTIVE [None]
  - DYSPEPSIA [None]
  - FEELING ABNORMAL [None]
  - MALAISE [None]
  - VERTIGO [None]
